FAERS Safety Report 5171181-X (Version None)
Quarter: 2006Q4

REPORT INFORMATION
  Report Type: 
  Country: None (occurrence: None)
  Receive Date: 20061206
  Receipt Date: 20061206
  Transmission Date: 20070319
  Serious: Yes (Hospitalization)
  Sender: FDA-Public Use
  Company Number: None

PATIENT
  Sex: Female
  Weight: 7.8 kg

DRUGS (4)
  1. MYLOTARG [Suspect]
     Dosage: .8 MG
  2. CYTARABINE [Suspect]
     Dosage: 520 MG
  3. DAUNORUBICIN HCL [Suspect]
     Dosage: 39 MG
  4. ETOPOSIDE [Suspect]
     Dosage: 125 MG

REACTIONS (7)
  - HAEMATURIA [None]
  - HYPERCAPNIA [None]
  - INTRAVENTRICULAR HAEMORRHAGE [None]
  - PLATELET COUNT DECREASED [None]
  - PNEUMONIA [None]
  - RESPIRATORY SYNCYTIAL VIRUS INFECTION [None]
  - THERAPY NON-RESPONDER [None]
